FAERS Safety Report 6498941-7 (Version None)
Quarter: 2009Q4

REPORT INFORMATION
  Report Type: 
  Country: None (occurrence: None)
  Receive Date: 20091215
  Receipt Date: 20091210
  Transmission Date: 20100525
  Serious: No
  Sender: FDA-Public Use
  Company Number: US-ROXANE LABORATORIES, INC.-2009-RO-01249RO

PATIENT

DRUGS (6)
  1. LEUCOVORIN CALCIUM [Suspect]
  2. FOLFOX CHEMOTHERAPY REGIMEN [Concomitant]
     Indication: COLON CANCER
  3. FOLFIRI CHEMOTHERAPY REGIMEN [Concomitant]
     Indication: COLON CANCER
  4. AVASTIN [Concomitant]
  5. ERBITUX [Concomitant]
  6. TARCEVA [Concomitant]

REACTIONS (1)
  - TREATMENT FAILURE [None]
